FAERS Safety Report 20046508 (Version 1)
Quarter: 2021Q4

REPORT INFORMATION
  Report Type: Spontaneous
  Country: FR (occurrence: FR)
  Receive Date: 20211109
  Receipt Date: 20211109
  Transmission Date: 20220303
  Serious: Yes (Death, Other)
  Sender: FDA-Public Use
  Company Number: FR-JAZZ-2021-FR-019508

PATIENT
  Age: 65 Year
  Sex: Female
  Weight: 76 kg

DRUGS (25)
  1. DEXAMETHASONE [Suspect]
     Active Substance: DEXAMETHASONE
     Indication: Vomiting
     Dosage: 12 A 4 MG
     Route: 048
     Dates: start: 20210802, end: 20210806
  2. DEXAMETHASONE [Suspect]
     Active Substance: DEXAMETHASONE
     Indication: Nausea
  3. IMIPENEM AND CILASTATIN [Suspect]
     Active Substance: CILASTATIN SODIUM\IMIPENEM
     Indication: Infection
     Dosage: 3 GRAM
     Route: 065
     Dates: start: 20210810, end: 20210815
  4. VYXEOS [Suspect]
     Active Substance: CYTARABINE\DAUNORUBICIN
     Indication: Acute myeloid leukaemia
     Dosage: 44 MG/M2-100 MG/M2 ON DAY 1
     Route: 042
     Dates: start: 20210802, end: 20210802
  5. VYXEOS [Suspect]
     Active Substance: CYTARABINE\DAUNORUBICIN
     Dosage: 44 MG/M2-100 MG/M2 ON DAY 3
     Route: 042
     Dates: start: 20210804, end: 20210804
  6. VYXEOS [Suspect]
     Active Substance: CYTARABINE\DAUNORUBICIN
     Dosage: 44 MG/M2-100 MG/M2 ON DAY 5
     Route: 042
     Dates: start: 20210806, end: 20210806
  7. VALACYCLOVIR HYDROCHLORIDE [Suspect]
     Active Substance: VALACYCLOVIR HYDROCHLORIDE
     Indication: Antiviral prophylaxis
     Route: 048
     Dates: start: 20210324, end: 20210815
  8. APREPITANT [Suspect]
     Active Substance: APREPITANT
     Indication: Vomiting
     Dosage: 125 A 80 MG
     Route: 048
     Dates: start: 20210802, end: 20210806
  9. APREPITANT [Suspect]
     Active Substance: APREPITANT
     Indication: Nausea
  10. ONDANSETRON [Suspect]
     Active Substance: ONDANSETRON
     Indication: Nausea
     Route: 042
     Dates: start: 20210802, end: 20210806
  11. ONDANSETRON [Suspect]
     Active Substance: ONDANSETRON
     Indication: Vomiting
  12. METRONIDAZOLE [Suspect]
     Active Substance: METRONIDAZOLE
     Indication: Diarrhoea infectious
     Route: 048
     Dates: start: 20210810, end: 20210815
  13. PANTOPRAZOLE [Suspect]
     Active Substance: PANTOPRAZOLE
     Indication: Hyperchlorhydria
     Route: 048
     Dates: start: 20210323, end: 20210815
  14. ACETAMINOPHEN [Suspect]
     Active Substance: ACETAMINOPHEN
     Indication: Antipyresis
     Route: 042
     Dates: start: 20210808, end: 20210815
  15. ZOFENOPRIL [Suspect]
     Active Substance: ZOFENOPRIL
     Indication: Hypertension
     Route: 065
     Dates: end: 20210815
  16. VANCOMYCIN [Suspect]
     Active Substance: VANCOMYCIN
     Indication: Infection
     Route: 042
     Dates: start: 20210808, end: 20210810
  17. LEVOTHYROXINE [Suspect]
     Active Substance: LEVOTHYROXINE
     Indication: Hypothyroidism
     Route: 048
     Dates: end: 20210815
  18. URAPIDIL [Suspect]
     Active Substance: URAPIDIL
     Indication: Hypertension
     Route: 048
     Dates: start: 20210804, end: 20210815
  19. NOXAFIL [Suspect]
     Active Substance: POSACONAZOLE
     Indication: Antifungal prophylaxis
     Route: 048
     Dates: start: 20210721, end: 20210815
  20. PRIMPERAN [Suspect]
     Active Substance: METOCLOPRAMIDE HYDROCHLORIDE
     Indication: Nausea
     Route: 042
     Dates: start: 20210802, end: 20210815
  21. SMECTA [Suspect]
     Active Substance: MONTMORILLONITE
     Indication: Diarrhoea
     Route: 048
     Dates: start: 20210809, end: 20210815
  22. RACECADOTRIL [Suspect]
     Active Substance: RACECADOTRIL
     Indication: Diarrhoea
     Route: 048
     Dates: start: 20210810, end: 20210815
  23. AMIKACIN [Suspect]
     Active Substance: AMIKACIN
     Indication: Infection
     Route: 042
     Dates: start: 20210814, end: 20210818
  24. AMIKACIN [Suspect]
     Active Substance: AMIKACIN
     Dosage: 1.5 GRAM
     Route: 042
     Dates: start: 20210809, end: 20210810
  25. PIPERACILLIN SODIUM\TAZOBACTAM SODIUM [Suspect]
     Active Substance: PIPERACILLIN SODIUM\TAZOBACTAM SODIUM
     Indication: Infection
     Route: 042
     Dates: start: 20210805, end: 20210810

REACTIONS (5)
  - Cardiogenic shock [Fatal]
  - Pyrexia [Fatal]
  - Septic shock [Fatal]
  - Aplasia [Fatal]
  - Off label use [Unknown]

NARRATIVE: CASE EVENT DATE: 20210805
